FAERS Safety Report 16838292 (Version 2)
Quarter: 2024Q3

REPORT INFORMATION
  Report Type: Report from Study
  Country: ES (occurrence: ES)
  Receive Date: 20190923
  Receipt Date: 20240923
  Transmission Date: 20241017
  Serious: Yes (Other)
  Sender: AUROBINDO
  Company Number: ES-AUROBINDO-AUR-APL-2019-061338

PATIENT

DRUGS (1)
  1. CINACALCET [Suspect]
     Active Substance: CINACALCET
     Indication: Hyperparathyroidism
     Dosage: UNK, ONCE A DAY
     Route: 065

REACTIONS (4)
  - Hyperphosphataemia [Unknown]
  - Abdominal discomfort [Unknown]
  - Muscle spasms [Unknown]
  - Off label use [Unknown]
